FAERS Safety Report 18458825 (Version 1)
Quarter: 2020Q4

REPORT INFORMATION
  Report Type: Spontaneous
  Country: FR (occurrence: FR)
  Receive Date: 20201103
  Receipt Date: 20201103
  Transmission Date: 20210114
  Serious: Yes (Other)
  Sender: FDA-Public Use
  Company Number: FR-ROCHE-2706836

PATIENT
  Age: 49 Year
  Sex: Female
  Weight: 86 kg

DRUGS (4)
  1. ORENCIA [Suspect]
     Active Substance: ABATACEPT
     Indication: RHEUMATOID ARTHRITIS
     Dosage: DATE OF MOST RECENT DOSE OF ABATACEPT: 17/DEC/2019
     Route: 042
     Dates: start: 20190715
  2. ROACTEMRA [Suspect]
     Active Substance: TOCILIZUMAB
     Indication: RHEUMATOID ARTHRITIS
     Dosage: DATE OF MOST RECENT DOSE OF TOCILIZUMAB: 02/MAR/2020.
     Route: 042
     Dates: start: 20200106
  3. NOVATREX (METHOTREXATE) [Suspect]
     Active Substance: METHOTREXATE SODIUM
     Indication: RHEUMATOID ARTHRITIS
     Dosage: 2.5 MG TABLET?DATE OF MOST RECENT DOSE OF METHOTREXATE: 01/MAR/2018
     Route: 048
     Dates: start: 2002
  4. ENBREL [Suspect]
     Active Substance: ETANERCEPT
     Indication: RHEUMATOID ARTHRITIS
     Dosage: DATE OF MOST RECENT DOSE OF ETANERCEPT: 01/MAR/2018
     Route: 058
     Dates: start: 2004

REACTIONS (1)
  - Breast cancer [Not Recovered/Not Resolved]

NARRATIVE: CASE EVENT DATE: 20200501
